FAERS Safety Report 9181361 (Version 2)
Quarter: 2013Q2

REPORT INFORMATION
  Report Type: Spontaneous
  Country: US (occurrence: US)
  Receive Date: 20130322
  Receipt Date: 20130528
  Transmission Date: 20140414
  Serious: No
  Sender: FDA-Public Use
  Company Number: US-009507513-1303USA010911

PATIENT
  Age: 63 Year
  Sex: Male

DRUGS (6)
  1. VICTRELIS [Suspect]
     Indication: HEPATITIS C
     Dosage: 800 MG, TID
     Route: 048
     Dates: start: 20130213
  2. VICTRELIS [Suspect]
     Dosage: THREE TIMES A DAY WITH FOOD
     Route: 048
     Dates: start: 20130313, end: 20130508
  3. PEGASYS [Concomitant]
     Dosage: UNK
     Dates: start: 201302
  4. RIBAPAK [Concomitant]
     Dosage: UNK
     Dates: start: 201302
  5. PROCRIT [Concomitant]
  6. ZANTAC [Concomitant]

REACTIONS (5)
  - Dyspnoea [Unknown]
  - Fatigue [Unknown]
  - Rash [Unknown]
  - Red blood cell count decreased [Unknown]
  - Drug ineffective [Unknown]
